FAERS Safety Report 8048958-6 (Version None)
Quarter: 2012Q1

REPORT INFORMATION
  Report Type: 
  Country: None (occurrence: None)
  Receive Date: 20120117
  Receipt Date: 20120106
  Transmission Date: 20120608
  Serious: Yes (Other)
  Sender: FDA-Public Use
  Company Number: PHHY2012NL003152

PATIENT
  Age: 36 Year
  Sex: Female
  Weight: 64 kg

DRUGS (2)
  1. CLOMIPRAMINE HCL [Suspect]
     Indication: PANIC DISORDER
     Dosage: 75 MG, UNK
  2. CLOMIPRAMINE HCL [Suspect]
     Dosage: 113 MG, UNK

REACTIONS (4)
  - HYPEREMESIS GRAVIDARUM [None]
  - MECONIUM IN AMNIOTIC FLUID [None]
  - GESTATIONAL DIABETES [None]
  - GESTATIONAL HYPERTENSION [None]
